FAERS Safety Report 20369718 (Version 2)
Quarter: 2023Q4

REPORT INFORMATION
  Report Type: Spontaneous
  Country: KR (occurrence: KR)
  Receive Date: 20220124
  Receipt Date: 20231211
  Transmission Date: 20240109
  Serious: Yes (Other)
  Sender: FDA-Public Use
  Company Number: KR-PFIZER INC-202200030037

PATIENT
  Sex: Male

DRUGS (1)
  1. XALATAN [Suspect]
     Active Substance: LATANOPROST
     Indication: Product used for unknown indication
     Dosage: UNK, 2X/DAY
     Route: 047

REACTIONS (4)
  - Intraocular pressure increased [Unknown]
  - Vision blurred [Unknown]
  - Product administration error [Unknown]
  - Off label use [Unknown]
